FAERS Safety Report 7378546-6 (Version None)
Quarter: 2011Q1

REPORT INFORMATION
  Report Type: 
  Country: None (occurrence: None)
  Receive Date: 20110328
  Receipt Date: 20110314
  Transmission Date: 20110831
  Serious: Yes (Other)
  Sender: FDA-Public Use
  Company Number: US-TYCO HEALTHCARE/MALLINCKRODT-T201100600

PATIENT
  Age: 67 Year
  Sex: Male

DRUGS (2)
  1. METHADOSE [Suspect]
     Indication: PAIN
     Dosage: 40 MG EVERY 6 HOURS
  2. METHADOSE [Suspect]
     Dosage: 20 MG EVERY 6 HOURS

REACTIONS (5)
  - LOSS OF CONSCIOUSNESS [None]
  - SOMNOLENCE [None]
  - BALANCE DISORDER [None]
  - FALL [None]
  - ACCIDENTAL OVERDOSE [None]
